FAERS Safety Report 6528263-7 (Version None)
Quarter: 2010Q1

REPORT INFORMATION
  Report Type: 
  Country: None (occurrence: None)
  Receive Date: 20100106
  Receipt Date: 20091222
  Transmission Date: 20100710
  Serious: Yes (Death, Hospitalization)
  Sender: FDA-Public Use
  Company Number: FR-JNJFOC-20100100252

PATIENT
  Age: 54 Year
  Sex: Male

DRUGS (3)
  1. IBUPROFEN [Suspect]
     Indication: JOINT INJURY
  2. COVERSYL [Suspect]
     Indication: HYPERTENSION
  3. TETRAZEPAM [Concomitant]
     Indication: JOINT INJURY

REACTIONS (2)
  - RENAL FAILURE ACUTE [None]
  - SEPSIS [None]
